FAERS Safety Report 12193834 (Version 1)
Quarter: 2016Q1

REPORT INFORMATION
  Report Type: Spontaneous
  Country: US (occurrence: US)
  Receive Date: 20160321
  Receipt Date: 20160321
  Transmission Date: 20160526
  Serious: No
  Sender: FDA-Public Use
  Company Number: PHEH2016US006321

PATIENT
  Age: 45 Year
  Sex: Female

DRUGS (1)
  1. GILENYA [Suspect]
     Active Substance: FINGOLIMOD HYDROCHLORIDE
     Indication: MULTIPLE SCLEROSIS
     Dosage: 0.5 MG, QD
     Route: 048
     Dates: start: 20160225

REACTIONS (6)
  - Hypersomnia [Unknown]
  - Fatigue [Unknown]
  - Intraocular pressure test [Unknown]
  - Lacrimation increased [Unknown]
  - Visual impairment [Unknown]
  - Eye discharge [Unknown]

NARRATIVE: CASE EVENT DATE: 20160229
